FAERS Safety Report 10227702 (Version 1)
Quarter: 2014Q2

REPORT INFORMATION
  Report Type: Spontaneous
  Country: US (occurrence: None)
  Receive Date: 20140606
  Receipt Date: 20140606
  Transmission Date: 20141212
  Serious: Yes (Other)
  Sender: FDA-Public Use
  Company Number: CIO14038584

PATIENT
  Sex: 0

DRUGS (1)
  1. PEPTO OR PEPTO-BISMOL, FORM/VERSION/FLAVOR UNKNOWN (BISMUTH SUBSALICYLATE UNK UNK, CALCIUM CARBONATE UNK UNK) UNKNOWN, 1DF [Suspect]
     Route: 048

REACTIONS (5)
  - Coma [None]
  - Head injury [None]
  - Amnesia [None]
  - Abasia [None]
  - Aphasia [None]
